FAERS Safety Report 7070237-4 (Version None)
Quarter: 2010Q4

REPORT INFORMATION
  Report Type: 
  Country: None (occurrence: None)
  Receive Date: 20101028
  Receipt Date: 20100929
  Transmission Date: 20110411
  Serious: No
  Sender: FDA-Public Use
  Company Number: US-WYE-H17904910

PATIENT
  Sex: Female
  Weight: 64.92 kg

DRUGS (2)
  1. EFFEXOR [Suspect]
     Indication: DEPRESSION
     Dosage: UNKNOWN
     Dates: end: 20100101
  2. VENLAFAXINE HYDROCHLORIDE [Suspect]
     Indication: DEPRESSION
     Dates: start: 20100101

REACTIONS (6)
  - AGITATION [None]
  - AMNESIA [None]
  - COUGH [None]
  - DRY THROAT [None]
  - DYSPHONIA [None]
  - VISION BLURRED [None]
